FAERS Safety Report 7460284-2 (Version None)
Quarter: 2011Q2

REPORT INFORMATION
  Report Type: 
  Country: None (occurrence: None)
  Receive Date: 20110505
  Receipt Date: 20110421
  Transmission Date: 20111010
  Serious: Yes (Hospitalization)
  Sender: FDA-Public Use
  Company Number: CA-JNJFOC-20110410369

PATIENT
  Sex: Female

DRUGS (2)
  1. REMICADE [Suspect]
     Indication: COLITIS ULCERATIVE
     Dosage: 5TH INFUSION
     Route: 042
  2. REMICADE [Suspect]
     Route: 042

REACTIONS (4)
  - HAEMATOCHEZIA [None]
  - VOMITING [None]
  - DIARRHOEA [None]
  - NAUSEA [None]
